FAERS Safety Report 4941416-4 (Version None)
Quarter: 2006Q1

REPORT INFORMATION
  Report Type: 
  Country: None (occurrence: None)
  Receive Date: 20060308
  Receipt Date: 20060224
  Transmission Date: 20060701
  Serious: Yes (Death, Life-Threatening, Hospitalization, Disabling, Other)
  Sender: FDA-Public Use
  Company Number: IE-2004-035762

PATIENT
  Age: 70 Year
  Sex: Male
  Weight: 66 kg

DRUGS (11)
  1. FLUDARABINE PHOSPHATE [Suspect]
     Indication: CHRONIC LYMPHOCYTIC LEUKAEMIA REFRACTORY
     Dosage: SEE IMAGE
     Route: 048
     Dates: start: 20040209, end: 20040211
  2. FLUDARABINE PHOSPHATE [Suspect]
     Indication: CHRONIC LYMPHOCYTIC LEUKAEMIA REFRACTORY
     Dosage: SEE IMAGE
     Route: 048
     Dates: start: 20040308, end: 20040312
  3. FLUDARABINE PHOSPHATE [Suspect]
     Indication: CHRONIC LYMPHOCYTIC LEUKAEMIA REFRACTORY
     Dosage: SEE IMAGE
     Route: 048
     Dates: start: 20040506, end: 20040510
  4. FLUDARABINE PHOSPHATE [Suspect]
     Indication: CHRONIC LYMPHOCYTIC LEUKAEMIA REFRACTORY
     Dosage: SEE IMAGE
     Route: 048
     Dates: start: 20031229, end: 20040607
  5. FLUDARABINE PHOSPHATE [Suspect]
     Indication: CHRONIC LYMPHOCYTIC LEUKAEMIA REFRACTORY
     Dosage: SEE IMAGE
     Route: 048
     Dates: start: 20040603, end: 20040607
  6. FLUDARABINE PHOSPHATE [Suspect]
     Indication: CHRONIC LYMPHOCYTIC LEUKAEMIA REFRACTORY
     Dosage: SEE IMAGE
     Route: 048
     Dates: start: 20040405
  7. NEUPOGEN (FLGRASTIM) [Concomitant]
  8. PLATELETS [Concomitant]
  9. CO-TRIMOXAZOLE [Concomitant]
  10. VALACYCLOVIR HCL [Concomitant]
  11. SULPHINPYRAZONE [Concomitant]

REACTIONS (4)
  - BONE MARROW FAILURE [None]
  - INTESTINAL PERFORATION [None]
  - PANCYTOPENIA [None]
  - PULMONARY TUBERCULOSIS [None]
